FAERS Safety Report 6425576-4 (Version None)
Quarter: 2009Q4

REPORT INFORMATION
  Report Type: 
  Country: None (occurrence: None)
  Receive Date: 20091103
  Receipt Date: 20091022
  Transmission Date: 20100525
  Serious: Yes (Hospitalization)
  Sender: FDA-Public Use
  Company Number: US-ELI_LILLY_AND_COMPANY-US200910007183

PATIENT
  Sex: Female

DRUGS (3)
  1. ZYPREXA [Suspect]
     Dosage: 10 MG, UNK
     Dates: start: 20080101, end: 20080101
  2. ZYPREXA [Suspect]
     Dosage: 20 MG, UNK
     Dates: start: 20080101, end: 20080101
  3. ZYPREXA [Suspect]
     Dosage: 10 MG, UNK
     Dates: start: 20080101

REACTIONS (2)
  - MANIA [None]
  - WHITE BLOOD CELL COUNT DECREASED [None]
